FAERS Safety Report 8370580-2 (Version None)
Quarter: 2012Q2

REPORT INFORMATION
  Report Type: 
  Country: None (occurrence: None)
  Receive Date: 20120518
  Receipt Date: 20120508
  Transmission Date: 20120825
  Serious: Yes (Hospitalization)
  Sender: FDA-Public Use
  Company Number: US-JNJFOC-20120509800

PATIENT
  Sex: Male
  Weight: 79 kg

DRUGS (5)
  1. REMICADE [Suspect]
     Indication: INFLAMMATORY BOWEL DISEASE
     Route: 042
     Dates: start: 20110815, end: 20120320
  2. HUMIRA [Concomitant]
     Dates: start: 20120327
  3. FERROUS FUMARATE [Concomitant]
  4. PROZAC [Concomitant]
  5. MULTIVITAMIN [Concomitant]

REACTIONS (1)
  - PERIRECTAL ABSCESS [None]
